FAERS Safety Report 10248868 (Version 1)
Quarter: 2014Q2

REPORT INFORMATION
  Report Type: Spontaneous
  Country: ES (occurrence: ES)
  Receive Date: 20140620
  Receipt Date: 20140620
  Transmission Date: 20141212
  Serious: Yes (Other)
  Sender: FDA-Public Use
  Company Number: ES-JNJFOC-20140612662

PATIENT
  Age: 65 Year
  Sex: Female

DRUGS (1)
  1. ZALDIAR [Suspect]
     Indication: BACK PAIN
     Route: 048
     Dates: start: 20140520

REACTIONS (3)
  - Nausea [Unknown]
  - Paraesthesia oral [Unknown]
  - Malaise [Unknown]
